FAERS Safety Report 10038642 (Version 1)
Quarter: 2014Q1

REPORT INFORMATION
  Report Type: Spontaneous
  Country: US (occurrence: None)
  Receive Date: 20140306
  Receipt Date: 20140306
  Transmission Date: 20141002
  Serious: Yes (Other)
  Sender: FDA-Public Use
  Company Number: 163-21880-13073704

PATIENT
  Age: 68 Year
  Sex: Male
  Weight: 96.16 kg

DRUGS (8)
  1. REVLIMID [Suspect]
     Indication: PLASMA CELL MYELOMA
     Dosage: 3 IN 1WK, PO
     Route: 048
     Dates: start: 20110328
  2. PROCHLORPERAZINE (PROCHLORPERAZINE) [Concomitant]
  3. OMEPRAZOLE (OMEPRAZOLE) [Concomitant]
  4. SEVELAMER (SEVELAMER) [Concomitant]
  5. DECADRON (DEXAMETHASONE) [Concomitant]
  6. ASPIRIN (ACETYLSALICYLIC ACID) [Concomitant]
  7. RENAGEL (SEVELAMER HYDROCHLORIDE) [Concomitant]
  8. FOLIC ACID (FOLIC ACID) [Concomitant]

REACTIONS (1)
  - Anaemia [None]
